FAERS Safety Report 21041963 (Version 6)
Quarter: 2022Q4

REPORT INFORMATION
  Report Type: Spontaneous
  Country: JP (occurrence: JP)
  Receive Date: 20220705
  Receipt Date: 20221018
  Transmission Date: 20230113
  Serious: Yes (Other)
  Sender: FDA-Public Use
  Company Number: JP-BRISTOL-MYERS SQUIBB COMPANY-2022-062433

PATIENT
  Age: 55 Year
  Sex: Male

DRUGS (3)
  1. HYDREA [Suspect]
     Active Substance: HYDROXYUREA
     Indication: Polycythaemia vera
     Route: 048
     Dates: start: 20220616
  2. HYDREA [Suspect]
     Active Substance: HYDROXYUREA
     Dosage: 1???1?????????
     Route: 048
     Dates: start: 20220818
  3. ASPIRIN [Concomitant]
     Active Substance: ASPIRIN
     Indication: Polycythaemia vera
     Route: 048

REACTIONS (15)
  - Internal haemorrhage [Unknown]
  - Inflammation [Unknown]
  - Platelet count decreased [Recovering/Resolving]
  - White blood cell count decreased [Unknown]
  - Oedema [Unknown]
  - Limb discomfort [Unknown]
  - Dysphagia [Unknown]
  - Bleeding time prolonged [Unknown]
  - Malaise [Recovered/Resolved]
  - Scratch [Unknown]
  - Inappropriate schedule of product administration [Unknown]
  - Fatigue [Unknown]
  - Headache [Unknown]
  - Pollakiuria [Unknown]
  - Anaemia [Unknown]
